FAERS Safety Report 13074289 (Version 1)
Quarter: 2016Q4

REPORT INFORMATION
  Report Type: Spontaneous
  Country: US (occurrence: US)
  Receive Date: 20161230
  Receipt Date: 20161230
  Transmission Date: 20170207
  Serious: Yes (Other)
  Sender: FDA-Public Use
  Company Number: US-SA-2016SA232030

PATIENT
  Age: 74 Year
  Sex: Male

DRUGS (1)
  1. ENOXAPARIN SODIUM - WINTHROP [Suspect]
     Active Substance: ENOXAPARIN SODIUM
     Indication: THROMBOSIS
     Route: 065
     Dates: start: 201612

REACTIONS (3)
  - Weight decreased [Unknown]
  - Injection site pain [Unknown]
  - Abdominal infection [Unknown]

NARRATIVE: CASE EVENT DATE: 201612
